FAERS Safety Report 9815046 (Version 1)
Quarter: 2014Q1

REPORT INFORMATION
  Report Type: Spontaneous
  Country: DE (occurrence: DE)
  Receive Date: 20140114
  Receipt Date: 20140114
  Transmission Date: 20141002
  Serious: Yes (Other)
  Sender: FDA-Public Use
  Company Number: DE-JNJFOC-20140100464

PATIENT
  Age: 21 Year
  Sex: Female

DRUGS (4)
  1. CETIRIZINE HYDROCHLORIDE [Suspect]
     Route: 065
  2. CETIRIZINE HYDROCHLORIDE [Suspect]
     Indication: URTICARIA CHRONIC
     Route: 065
  3. FEXOFENADINE [Suspect]
     Indication: URTICARIA CHRONIC
     Route: 065
  4. RUPATADINE [Suspect]
     Indication: URTICARIA CHRONIC
     Route: 065

REACTIONS (2)
  - Urticaria chronic [Unknown]
  - Off label use [Unknown]
